FAERS Safety Report 9108488 (Version 2)
Quarter: 2013Q2

REPORT INFORMATION
  Report Type: Spontaneous
  Country: JP (occurrence: JP)
  Receive Date: 20130222
  Receipt Date: 20130522
  Transmission Date: 20140414
  Serious: Yes (Hospitalization)
  Sender: FDA-Public Use
  Company Number: PHHY2013JP014834

PATIENT
  Age: 60 Year
  Sex: Male

DRUGS (8)
  1. PREDNISOLONE [Suspect]
     Dosage: 30 MG, PER DAY
  2. PREDNISOLONE [Suspect]
     Dosage: 25 MG, PER DAY
  3. METHOTREXATE [Suspect]
     Dosage: 4 MG, PER WEEL
  4. AZATHIOPRINE [Suspect]
     Dosage: 75 MG, PER DAY
  5. AZATHIOPRINE [Suspect]
     Dosage: 125 MG, PER DAY
  6. NEORAL [Concomitant]
     Dosage: 200 MG, PER DAY
  7. PREDNISOLONE [Suspect]
     Indication: BEHCET^S SYNDROME
     Dosage: 10 MG, PER DAY
  8. PREDNISOLONE [Suspect]
     Dosage: 15 MG, PER DAY

REACTIONS (6)
  - Deep vein thrombosis [Recovered/Resolved]
  - Pain in extremity [Unknown]
  - Limb discomfort [Recovered/Resolved]
  - Oedema peripheral [Recovered/Resolved]
  - Pulmonary embolism [Recovered/Resolved]
  - Drug ineffective [Recovered/Resolved]
